FAERS Safety Report 17729973 (Version 2)
Quarter: 2020Q4

REPORT INFORMATION
  Report Type: Spontaneous
  Country: US (occurrence: US)
  Receive Date: 20200430
  Receipt Date: 20201113
  Transmission Date: 20210113
  Serious: Yes (Other)
  Sender: FDA-Public Use
  Company Number: US-TEVA-2020-US-1231998

PATIENT
  Age: 49 Year
  Sex: Female

DRUGS (2)
  1. AJOVY [Suspect]
     Active Substance: FREMANEZUMAB-VFRM
     Dosage: 2 INJECTIONS: 1ST SHORT JAN 2020; 2ND SHOT FEB 2020
     Dates: start: 202001, end: 2020
  2. AJOVY [Suspect]
     Active Substance: FREMANEZUMAB-VFRM

REACTIONS (1)
  - Blindness [Unknown]

NARRATIVE: CASE EVENT DATE: 2020
